FAERS Safety Report 7610981-0 (Version None)
Quarter: 2011Q3

REPORT INFORMATION
  Report Type: 
  Country: None (occurrence: None)
  Receive Date: 20110715
  Receipt Date: 20110708
  Transmission Date: 20111222
  Serious: Yes (Hospitalization, Other)
  Sender: FDA-Public Use
  Company Number: US-PFIZER INC-2011154412

PATIENT
  Age: 57 Year
  Sex: Female

DRUGS (1)
  1. PREMARIN [Suspect]
     Dosage: 1.25 MG, UNK

REACTIONS (3)
  - INTESTINAL CYST [None]
  - DIARRHOEA [None]
  - DEHYDRATION [None]
